FAERS Safety Report 7997115-8 (Version None)
Quarter: 2011Q4

REPORT INFORMATION
  Report Type: 
  Country: None (occurrence: None)
  Receive Date: 20111221
  Receipt Date: 20111215
  Transmission Date: 20120403
  Serious: Yes (Death, Hospitalization)
  Sender: FDA-Public Use
  Company Number: FR-SANOFI-AVENTIS-2011SA002549

PATIENT
  Age: 79 Year
  Sex: Male

DRUGS (6)
  1. KYTRIL [Concomitant]
     Dates: start: 20101004, end: 20101217
  2. MULTAQ [Suspect]
     Indication: ATRIAL FIBRILLATION
     Route: 048
     Dates: start: 20101203, end: 20101223
  3. SOLU-MEDROL [Concomitant]
     Dates: start: 20101004, end: 20101217
  4. TAXOTERE [Interacting]
     Indication: PROSTATE CANCER METASTATIC
     Route: 042
     Dates: start: 20101004, end: 20101217
  5. PRAVASTATIN [Concomitant]
  6. FLUINDIONE [Concomitant]

REACTIONS (16)
  - DIARRHOEA [None]
  - CONJUNCTIVITIS [None]
  - MUCOSAL INFLAMMATION [None]
  - STOMATITIS [None]
  - SEPTIC SHOCK [None]
  - KERATITIS [None]
  - BONE MARROW FAILURE [None]
  - DRUG INTERACTION [None]
  - OVERDOSE [None]
  - SKIN LESION [None]
  - FEBRILE NEUTROPENIA [None]
  - ACUTE RESPIRATORY FAILURE [None]
  - CIRCULATORY COLLAPSE [None]
  - ERYTHEMA [None]
  - PYREXIA [None]
  - MIXED LIVER INJURY [None]
